FAERS Safety Report 10081897 (Version 2)
Quarter: 2014Q2

REPORT INFORMATION
  Report Type: Spontaneous
  Country: US (occurrence: US)
  Receive Date: 20140416
  Receipt Date: 20140519
  Transmission Date: 20141212
  Serious: Yes (Other)
  Sender: FDA-Public Use
  Company Number: US-GLAXOSMITHKLINE-A1068688A

PATIENT
  Age: 64 Year
  Sex: Female

DRUGS (2)
  1. ADVAIR [Suspect]
     Indication: BRONCHIECTASIS
     Dosage: 1PUFF TWICE PER DAY
     Route: 055
     Dates: start: 201206
  2. OXYGEN [Concomitant]

REACTIONS (8)
  - Pneumonia [Recovered/Resolved]
  - Dyspnoea [Recovered/Resolved]
  - Movement disorder [Recovered/Resolved]
  - Decreased activity [Recovered/Resolved]
  - Oxygen supplementation [Recovered/Resolved]
  - Chest discomfort [Recovered/Resolved]
  - Drug ineffective [Recovered/Resolved]
  - Product quality issue [Unknown]
